FAERS Safety Report 19300763 (Version 1)
Quarter: 2021Q2

REPORT INFORMATION
  Report Type: Spontaneous
  Country: US (occurrence: US)
  Receive Date: 20210525
  Receipt Date: 20210525
  Transmission Date: 20210717
  Serious: No
  Sender: FDA-Public Use
  Company Number: US-SA-2021SA165313

PATIENT
  Sex: Female

DRUGS (1)
  1. DUPIXENT [Suspect]
     Active Substance: DUPILUMAB
     Indication: DERMATITIS ATOPIC
     Route: 058
     Dates: start: 20200925

REACTIONS (5)
  - Product use issue [Unknown]
  - Dermatitis atopic [Unknown]
  - Dry eye [Unknown]
  - Discomfort [Unknown]
  - Thinking abnormal [Unknown]
